FAERS Safety Report 9745492 (Version 1)
Quarter: 2013Q4

REPORT INFORMATION
  Report Type: Spontaneous
  Country: US (occurrence: None)
  Receive Date: 20131205
  Receipt Date: 20131205
  Transmission Date: 20140711
  Serious: Yes (Other)
  Sender: FDA-Public Use
  Company Number: None

PATIENT
  Age: 62 Year
  Sex: Male
  Weight: 81.3 kg

DRUGS (1)
  1. ISOVUE 300 [Suspect]
     Indication: X-RAY WITH CONTRAST
     Dates: start: 20131104

REACTIONS (3)
  - Dry throat [None]
  - Oropharyngeal spasm [None]
  - Chills [None]
